FAERS Safety Report 4430222-5 (Version None)
Quarter: 2004Q3

REPORT INFORMATION
  Report Type: 
  Country: None (occurrence: None)
  Receive Date: 20040819
  Receipt Date: 20040819
  Transmission Date: 20050211
  Serious: Yes (Death)
  Sender: FDA-Public Use
  Company Number: None

PATIENT
  Age: 64 Year
  Sex: Female
  Weight: 55.7924 kg

DRUGS (11)
  1. OCTREOTIDE ACETATE [Suspect]
     Indication: SMALL INTESTINAL OBSTRUCTION
     Dosage: 30 MG Q MONTH IM
     Route: 030
     Dates: start: 20040729, end: 20040729
  2. OCTREOTIDE ACETATE [Suspect]
     Indication: SMALL INTESTINAL OBSTRUCTION
     Dosage: 100 MCG TID/2W SQ
     Route: 058
     Dates: start: 20040729, end: 20040811
  3. COUMADIN [Concomitant]
  4. OXYCONTIN [Concomitant]
  5. FENTANYL [Concomitant]
  6. MORPHINE [Concomitant]
  7. DEXEDRINE [Concomitant]
  8. OXYFAST [Concomitant]
  9. PRILOSEC [Concomitant]
  10. EPOGEN [Concomitant]
  11. ZYPREXA [Concomitant]

REACTIONS (4)
  - CONSTIPATION [None]
  - FEEDING TUBE COMPLICATION [None]
  - MALIGNANT NEOPLASM PROGRESSION [None]
  - SMALL INTESTINAL OBSTRUCTION [None]
